FAERS Safety Report 7939043-X (Version None)
Quarter: 2011Q4

REPORT INFORMATION
  Report Type: 
  Country: None (occurrence: None)
  Receive Date: 20111124
  Receipt Date: 20111118
  Transmission Date: 20120403
  Serious: Yes (Other)
  Sender: FDA-Public Use
  Company Number: DK-PFIZER INC-2010157673

PATIENT
  Age: 65 Year
  Sex: Female

DRUGS (14)
  1. ZOLEDRONIC ACID [Suspect]
     Indication: HYPERCALCAEMIA
     Dosage: 4 MG, CYCLIC: EVERY 6 WEEKS
     Dates: start: 20090428
  2. ZOLEDRONIC ACID [Suspect]
     Indication: PROPHYLAXIS
     Dosage: 4 MG, CYCLIC: EVERY 6 WEEKS
     Dates: start: 20090609
  3. PREDNISOLONE [Concomitant]
     Dosage: 5 MG, 1X/DAY
     Dates: start: 20080901
  4. EMPERAL [Concomitant]
  5. ZOLEDRONIC ACID [Suspect]
     Indication: METASTASES TO BONE
     Dosage: 4 MG, CYCLIC: EVERY 6 WEEKS
     Dates: start: 20090901
  6. NEXIUM [Concomitant]
     Dosage: 40 MG, 1X/DAY
     Route: 048
  7. MICARDIS [Concomitant]
     Indication: HYPERTENSION
     Dosage: 40 MG, 1X/DAY
     Route: 048
  8. IMIPRAMINE [Concomitant]
     Dosage: 10 MG, 1X/DAY
  9. MORPHINE SULFATE [Concomitant]
     Dosage: 30 MG, UNK
  10. IMOZOP [Concomitant]
     Route: 048
  11. SUNITINIB MALATE [Suspect]
     Indication: METASTATIC RENAL CELL CARCINOMA
     Dosage: 25 MG, 1X/DAY
     Route: 048
     Dates: start: 20080402, end: 20100617
  12. CENTYL [Concomitant]
     Indication: HYPERTENSION
     Dosage: 1 TABLET DAILY
  13. MORPHINE [Concomitant]
     Dosage: 10 MG, AS NEEDED
  14. METOPROLOL SUCCINATE [Concomitant]
     Indication: HYPERTENSION
     Dosage: 50 MG, 1X/DAY

REACTIONS (2)
  - PAIN IN JAW [None]
  - OSTEONECROSIS OF JAW [None]
